FAERS Safety Report 22288210 (Version 1)
Quarter: 2023Q2

REPORT INFORMATION
  Report Type: Spontaneous
  Country: US (occurrence: US)
  Receive Date: 20230505
  Receipt Date: 20230505
  Transmission Date: 20230722
  Serious: No
  Sender: FDA-Public Use
  Company Number: US-APOTEX-2023AP006519

PATIENT
  Sex: Male

DRUGS (2)
  1. BRIMONIDINE TARTRATE [Suspect]
     Active Substance: BRIMONIDINE TARTRATE
     Indication: Product used for unknown indication
     Dosage: 1 GTT DROPS, TID (1 DROP IN THE AFFECTED EYE 3 TIMES A DAY)
     Route: 047
     Dates: start: 202303
  2. BRIMONIDINE TARTRATE [Suspect]
     Active Substance: BRIMONIDINE TARTRATE
     Dosage: 1 GTT DROPS, TID (1 DROP IN THE AFFECTED EYE 3 TIMES A DAY)
     Route: 047
     Dates: start: 202303

REACTIONS (5)
  - Recalled product administered [Unknown]
  - Product contamination [Unknown]
  - Vision blurred [Unknown]
  - Eye pruritus [Unknown]
  - Eye pain [Unknown]

NARRATIVE: CASE EVENT DATE: 20230301
